FAERS Safety Report 6035734-9 (Version None)
Quarter: 2009Q1

REPORT INFORMATION
  Report Type: 
  Country: None (occurrence: None)
  Receive Date: 20090113
  Receipt Date: 20090105
  Transmission Date: 20090719
  Serious: Yes (Hospitalization)
  Sender: FDA-Public Use
  Company Number: US-CELGENEUS-163-21880-09010070

PATIENT
  Sex: Male

DRUGS (2)
  1. REVLIMID [Suspect]
     Indication: MULTIPLE MYELOMA
     Route: 048
     Dates: start: 20081020
  2. REVLIMID [Suspect]
     Route: 048
     Dates: start: 20070817, end: 20081001

REACTIONS (3)
  - BACK PAIN [None]
  - HEART RATE IRREGULAR [None]
  - RED BLOOD CELL COUNT ABNORMAL [None]
